FAERS Safety Report 16139953 (Version 1)
Quarter: 2019Q2

REPORT INFORMATION
  Report Type: Spontaneous
  Country: US (occurrence: US)
  Receive Date: 20190329
  Receipt Date: 20190329
  Transmission Date: 20190711
  Serious: Yes (Other)
  Sender: FDA-Public Use
  Company Number: None

PATIENT
  Age: 43 Year
  Sex: Female
  Weight: 129.6 kg

DRUGS (6)
  1. BABY ASPIRIN [Concomitant]
     Active Substance: ASPIRIN
  2. OXYCODONE [Concomitant]
     Active Substance: OXYCODONE
  3. ADVIL [Concomitant]
     Active Substance: IBUPROFEN
  4. AJOVY [Suspect]
     Active Substance: FREMANEZUMAB-VFRM
     Indication: HEMIPLEGIC MIGRAINE
     Dosage: ?          QUANTITY:1 INJECTION(S);OTHER FREQUENCY:1/MONTH;?
     Route: 058
     Dates: start: 20190323
  5. TRAMADOL. [Concomitant]
     Active Substance: TRAMADOL
  6. BACLOFEN. [Concomitant]
     Active Substance: BACLOFEN

REACTIONS (6)
  - Dizziness [None]
  - Throat tightness [None]
  - Nausea [None]
  - Pharyngeal swelling [None]
  - Night sweats [None]
  - Abnormal dreams [None]

NARRATIVE: CASE EVENT DATE: 20190325
